FAERS Safety Report 25182903 (Version 1)
Quarter: 2025Q2

REPORT INFORMATION
  Report Type: Spontaneous
  Country: US (occurrence: US)
  Receive Date: 20250410
  Receipt Date: 20250410
  Transmission Date: 20250717
  Serious: No
  Sender: NOVARTIS
  Company Number: US-002147023-NVSC2025US058001

PATIENT
  Sex: Female

DRUGS (1)
  1. COSENTYX [Suspect]
     Active Substance: SECUKINUMAB
     Indication: Product used for unknown indication
     Dosage: 1 DOSAGE FORM, QW [FOR 5 WEEKS (WEEKS 0, 1, 2, 3, AND 4), THEN INJECT EVERY 4 WEEKS THEREAFTER]
     Route: 065

REACTIONS (4)
  - Injection site haemorrhage [Unknown]
  - Device mechanical issue [Unknown]
  - Device leakage [Unknown]
  - Incorrect dose administered by device [Unknown]

NARRATIVE: CASE EVENT DATE: 20250314
